FAERS Safety Report 8846993 (Version 1)
Quarter: 2012Q4

REPORT INFORMATION
  Report Type: 
  Country: US (occurrence: US)
  Receive Date: 20121018
  Receipt Date: 20121018
  Transmission Date: 20130627
  Serious: Yes (Hospitalization, Other)
  Sender: FDA-Public Use
  Company Number: US-009507513-2009-198567-NL

PATIENT

DRUGS (4)
  1. NUVARING [Suspect]
     Indication: CONTRACEPTION
     Dates: start: 20061221, end: 2008
  2. MIRENA [Suspect]
     Indication: CONTRACEPTION
     Dates: start: 20091229
  3. CEPHALEXIN [Concomitant]
     Indication: BACTERIAL INFECTION
     Dosage: 500 mg, UNK
     Dates: start: 20080721, end: 20080801
  4. AMITRIPTYLINE HYDROCHLORIDE [Concomitant]
     Indication: ANTIDEPRESSANT THERAPY
     Dosage: 10 mg, UNK
     Dates: start: 20080730, end: 20090101

REACTIONS (28)
  - Myocardial infarction [Unknown]
  - Pneumonia [Unknown]
  - Fluid overload [Unknown]
  - Cardiac failure congestive [Unknown]
  - Nodule [Unknown]
  - Pulmonary embolism [Unknown]
  - Cough [Unknown]
  - Musculoskeletal pain [Unknown]
  - Pyrexia [Unknown]
  - Bronchitis [Unknown]
  - Viral upper respiratory tract infection [Unknown]
  - Gastroenteritis [Unknown]
  - Vaginal cyst [Unknown]
  - Urinary tract infection [Unknown]
  - Pain in extremity [Unknown]
  - Dysmenorrhoea [Unknown]
  - Dyspareunia [Unknown]
  - Pelvic pain [Unknown]
  - Depressed mood [Unknown]
  - Migraine [Not Recovered/Not Resolved]
  - Menstruation delayed [Unknown]
  - Vaginitis bacterial [Unknown]
  - Nausea [Unknown]
  - Menorrhagia [Unknown]
  - Unintended pregnancy [Recovered/Resolved]
  - Metrorrhagia [Unknown]
  - Pain in extremity [Unknown]
  - Chest pain [Unknown]
